FAERS Safety Report 7078245-4 (Version None)
Quarter: 2010Q4

REPORT INFORMATION
  Report Type: 
  Country: None (occurrence: None)
  Receive Date: 20101101
  Receipt Date: 20101101
  Transmission Date: 20110411
  Serious: No
  Sender: FDA-Public Use
  Company Number: None

PATIENT
  Age: 76 Year
  Sex: Female
  Weight: 62.1428 kg

DRUGS (1)
  1. TIMOLOL 0.5% GEL SOLUTION [Suspect]
     Indication: GLAUCOMA
     Dosage: 1 DROP DAILY EYE (RT)
     Route: 047
     Dates: start: 20100824, end: 20100828

REACTIONS (4)
  - ABDOMINAL DISTENSION [None]
  - BLOOD PRESSURE INCREASED [None]
  - DRUG INTERACTION [None]
  - DYSPEPSIA [None]
